FAERS Safety Report 23948016 (Version 1)
Quarter: 2024Q2

REPORT INFORMATION
  Report Type: Spontaneous
  Country: US (occurrence: US)
  Receive Date: 20240607
  Receipt Date: 20240607
  Transmission Date: 20240716
  Serious: No
  Sender: FDA-Public Use
  Company Number: US-ABBVIE-5785958

PATIENT
  Sex: Female

DRUGS (2)
  1. LINZESS [Suspect]
     Active Substance: LINACLOTIDE
     Indication: Product used for unknown indication
     Route: 048
  2. TARPEYO [Suspect]
     Active Substance: BUDESONIDE
     Indication: IgA nephropathy
     Dosage: 16 MG ORALLY
     Route: 048
     Dates: start: 20220208

REACTIONS (5)
  - Dehydration [Unknown]
  - Abdominal pain [Unknown]
  - Scar [Unknown]
  - Smear cervix abnormal [Unknown]
  - Glomerular filtration rate increased [Unknown]
